FAERS Safety Report 8497905 (Version 3)
Quarter: 2013Q1

REPORT INFORMATION
  Report Type: Spontaneous
  Country: US (occurrence: US)
  Receive Date: 20120406
  Receipt Date: 20130110
  Transmission Date: 20140127
  Serious: Yes (Life-Threatening, Hospitalization, Other)
  Sender: FDA-Public Use
  Company Number: US-BRISTOL-MYERS SQUIBB COMPANY-16396467

PATIENT
  Age: 68 Year
  Sex: Male

DRUGS (5)
  1. BELATACEPT [Suspect]
     Indication: RENAL TRANSPLANT
     Route: 042
     Dates: start: 20111123, end: 20111215
  2. PREDNISONE [Concomitant]
  3. CELLCEPT [Concomitant]
  4. PROGRAF [Concomitant]
  5. THYMOGLOBULINE [Concomitant]

REACTIONS (2)
  - Transplant rejection [Recovered/Resolved]
  - Renal tubular necrosis [Unknown]
